FAERS Safety Report 17296982 (Version 1)
Quarter: 2020Q1

REPORT INFORMATION
  Report Type: Spontaneous
  Country: FR (occurrence: FR)
  Receive Date: 20200122
  Receipt Date: 20200122
  Transmission Date: 20200409
  Serious: Yes (Hospitalization)
  Sender: FDA-Public Use
  Company Number: FR-TEVA-2020-FR-1170777

PATIENT
  Age: 75 Year
  Sex: Male
  Weight: 67 kg

DRUGS (14)
  1. LOPERAMIDE (CHLORHYDRATE DE) [Concomitant]
     Active Substance: LOPERAMIDE
     Route: 048
  2. PARACETAMOL [Concomitant]
     Active Substance: ACETAMINOPHEN
     Route: 048
  3. FLUOROURACILE ACCORD [Suspect]
     Active Substance: FLUOROURACIL
     Indication: OESOPHAGEAL CARCINOMA
     Dosage: CURE FOLRIRI AVEC 75% 5FU ET IRINOT?CAN
     Route: 041
     Dates: start: 20191114, end: 20191115
  4. ALFUZOSINE (CHLORHYDRATE D) [Concomitant]
     Active Substance: ALFUZOSIN HYDROCHLORIDE
     Route: 048
  5. SIMVASTATINE [Concomitant]
     Active Substance: SIMVASTATIN
     Route: 048
  6. LEVOTHYROXINE SODIQUE [Concomitant]
     Active Substance: LEVOTHYROXINE SODIUM
     Route: 048
  7. NEUPRO [Concomitant]
     Active Substance: ROTIGOTINE
     Route: 062
  8. METOCLOPRAMIDE. [Concomitant]
     Active Substance: METOCLOPRAMIDE
     Route: 048
  9. AMLODIPINE [Concomitant]
     Active Substance: AMLODIPINE BESYLATE
     Route: 048
  10. ACIDE FOLINIQUE [Suspect]
     Active Substance: LEUCOVORIN
     Indication: CHEMOTHERAPY TOXICITY ATTENUATION
     Dosage: CURE FOLFIRI
     Route: 041
     Dates: start: 20191114
  11. KARDEGIC [Concomitant]
     Active Substance: ASPIRIN DL-LYSINE
     Route: 048
  12. TERALITHE [Concomitant]
     Active Substance: LITHIUM CARBONATE
     Route: 048
  13. PANTOPRAZOLE [Concomitant]
     Active Substance: PANTOPRAZOLE
     Route: 048
  14. IRINOTECAN [Suspect]
     Active Substance: IRINOTECAN
     Indication: OESOPHAGEAL CARCINOMA
     Dosage: FOLFIRI CURE WITH 75% IRINOTECAN AND 5FU
     Route: 041
     Dates: start: 20191114, end: 20191114

REACTIONS (3)
  - Hypokalaemia [Recovered/Resolved]
  - Diarrhoea [Recovered/Resolved]
  - Paraesthesia [Unknown]

NARRATIVE: CASE EVENT DATE: 20191120
